FAERS Safety Report 23676948 (Version 2)
Quarter: 2024Q3

REPORT INFORMATION
  Report Type: Spontaneous
  Country: PL (occurrence: PL)
  Receive Date: 20240327
  Receipt Date: 20240802
  Transmission Date: 20241017
  Serious: Yes (Hospitalization, Other)
  Sender: NOVARTIS
  Company Number: PL-002147023-NVSC2024PL062031

PATIENT
  Age: 23 Year
  Sex: Female

DRUGS (1)
  1. KESIMPTA [Suspect]
     Active Substance: OFATUMUMAB
     Indication: Multiple sclerosis
     Dosage: UNK
     Route: 065
     Dates: start: 202301

REACTIONS (13)
  - Multiple sclerosis relapse [Unknown]
  - Muscle strength abnormal [Unknown]
  - Bell^s palsy [Unknown]
  - Hypoaesthesia [Unknown]
  - Peripheral nerve injury [Unknown]
  - Paresis [Unknown]
  - Multiple sclerosis relapse [Unknown]
  - Eye pain [Unknown]
  - Upper respiratory tract infection [Unknown]
  - Influenza like illness [Recovered/Resolved]
  - Depressed mood [Unknown]
  - Eye disorder [Unknown]
  - Facial paresis [Unknown]

NARRATIVE: CASE EVENT DATE: 20230101
